FAERS Safety Report 10933027 (Version 1)
Quarter: 2015Q1

REPORT INFORMATION
  Report Type: Report from Study
  Country: FR (occurrence: FR)
  Receive Date: 20150320
  Receipt Date: 20150320
  Transmission Date: 20150721
  Serious: Yes (Hospitalization, Other)
  Sender: FDA-Public Use
  Company Number: FR-ROCHE-1164291

PATIENT
  Age: 81 Year
  Sex: Female

DRUGS (32)
  1. BISOPROLOL [Concomitant]
     Active Substance: BISOPROLOL
  2. RITUXIMAB [Suspect]
     Active Substance: RITUXIMAB
     Indication: RHEUMATOID ARTHRITIS
     Route: 042
     Dates: start: 20081022
  3. RITUXIMAB [Suspect]
     Active Substance: RITUXIMAB
     Route: 042
     Dates: start: 20101014
  4. RITUXIMAB [Suspect]
     Active Substance: RITUXIMAB
     Route: 042
     Dates: start: 20110503
  5. METHOTREXATE [Concomitant]
     Active Substance: METHOTREXATE
     Route: 065
  6. INIPOMP [Concomitant]
     Active Substance: PANTOPRAZOLE SODIUM
  7. EFFEXOR [Concomitant]
     Active Substance: VENLAFAXINE HYDROCHLORIDE
  8. CORTANCYL [Concomitant]
     Active Substance: PREDNISONE
     Route: 065
  9. GARDENAL [Concomitant]
     Active Substance: PHENOBARBITAL
  10. SPECIAFOLDINE [Concomitant]
     Active Substance: FOLIC ACID
  11. CORDARONE [Concomitant]
     Active Substance: AMIODARONE HYDROCHLORIDE
  12. RITUXIMAB [Suspect]
     Active Substance: RITUXIMAB
     Route: 042
     Dates: start: 20111018
  13. CORTANCYL [Concomitant]
     Active Substance: PREDNISONE
     Route: 065
  14. PLAVIX [Concomitant]
     Active Substance: CLOPIDOGREL BISULFATE
  15. CACIT D3 [Concomitant]
     Active Substance: CALCIUM\CHOLECALCIFEROL
  16. CRESTOR [Concomitant]
     Active Substance: ROSUVASTATIN CALCIUM
  17. PARACETAMOL [Concomitant]
     Active Substance: ACETAMINOPHEN
  18. IXPRIM [Concomitant]
     Active Substance: ACETAMINOPHEN\TRAMADOL HYDROCHLORIDE
  19. SODIUM CHLORIDE. [Concomitant]
     Active Substance: SODIUM CHLORIDE
  20. RITUXIMAB [Suspect]
     Active Substance: RITUXIMAB
     Route: 042
     Dates: start: 20121002
  21. CORTANCYL [Concomitant]
     Active Substance: PREDNISONE
     Route: 065
  22. RITUXIMAB [Suspect]
     Active Substance: RITUXIMAB
     Route: 042
     Dates: start: 20120329
  23. RITUXIMAB [Suspect]
     Active Substance: RITUXIMAB
     Route: 042
     Dates: start: 20130513
  24. CORTANCYL [Concomitant]
     Active Substance: PREDNISONE
     Route: 065
  25. TAREG [Concomitant]
     Active Substance: VALSARTAN
  26. RITUXIMAB [Suspect]
     Active Substance: RITUXIMAB
     Route: 042
     Dates: start: 20081104
  27. RITUXIMAB [Suspect]
     Active Substance: RITUXIMAB
     Route: 042
     Dates: start: 20110420
  28. RITUXIMAB [Suspect]
     Active Substance: RITUXIMAB
     Route: 042
     Dates: start: 20140711
  29. CORTANCYL [Concomitant]
     Active Substance: PREDNISONE
     Route: 065
  30. INEXIUM [Concomitant]
     Active Substance: ESOMEPRAZOLE
  31. KREDEX [Concomitant]
     Active Substance: CARVEDILOL
  32. ASPEGIC [Concomitant]
     Active Substance: ASPIRIN DL-LYSINE

REACTIONS (17)
  - Cardiac failure [Not Recovered/Not Resolved]
  - Constipation [Unknown]
  - Back pain [Not Recovered/Not Resolved]
  - Bronchopneumonia [Unknown]
  - Hyponatraemia [Recovered/Resolved]
  - Renal failure [Unknown]
  - Diarrhoea [Unknown]
  - Acute respiratory failure [Recovered/Resolved]
  - Inflammation [Unknown]
  - Pyrexia [Unknown]
  - Cardiac failure [Recovered/Resolved]
  - Bronchial disorder [Recovered/Resolved]
  - Sciatica [Unknown]
  - Neck pain [Not Recovered/Not Resolved]
  - Escherichia urinary tract infection [Recovered/Resolved]
  - Rash [Recovered/Resolved]
  - Atrial fibrillation [Recovered/Resolved]

NARRATIVE: CASE EVENT DATE: 20081205
